FAERS Safety Report 12190918 (Version 1)
Quarter: 2016Q1

REPORT INFORMATION
  Report Type: Spontaneous
  Country: US (occurrence: US)
  Receive Date: 20160318
  Receipt Date: 20160318
  Transmission Date: 20160526
  Serious: No
  Sender: FDA-Public Use
  Company Number: US-BRISTOL-MYERS SQUIBB COMPANY-BMS-2016-020001

PATIENT
  Sex: Female

DRUGS (2)
  1. ELIQUIS [Suspect]
     Active Substance: APIXABAN
     Indication: THROMBOSIS PROPHYLAXIS
     Route: 048
  2. VOLTAREN [Interacting]
     Active Substance: DICLOFENAC SODIUM
     Indication: ARTHRALGIA
     Route: 065

REACTIONS (1)
  - Labelled drug-drug interaction medication error [Unknown]
